FAERS Safety Report 6206885-0 (Version None)
Quarter: 2009Q2

REPORT INFORMATION
  Report Type: 
  Country: None (occurrence: None)
  Receive Date: 20090520
  Receipt Date: 20090224
  Transmission Date: 20091009
  Serious: No
  Sender: FDA-Public Use
  Company Number: 2009SP004230

PATIENT
  Sex: Female

DRUGS (1)
  1. NOXAFIL [Suspect]
     Indication: BRONCHOPULMONARY ASPERGILLOSIS
     Dosage: ;BID;PO
     Route: 048

REACTIONS (2)
  - BLOOD POTASSIUM INCREASED [None]
  - HYPOAESTHESIA FACIAL [None]
